FAERS Safety Report 6649607-1 (Version None)
Quarter: 2010Q1

REPORT INFORMATION
  Report Type: 
  Country: None (occurrence: None)
  Receive Date: 20100324
  Receipt Date: 20100324
  Transmission Date: 20100710
  Serious: Yes (Death)
  Sender: FDA-Public Use
  Company Number: None

PATIENT
  Age: 93 Year
  Sex: Female
  Weight: 73.2 kg

DRUGS (1)
  1. ARANESP [Suspect]
     Indication: RENAL DISORDER
     Dosage: 200MCG
     Dates: start: 20100201

REACTIONS (3)
  - ACUTE MYOCARDIAL INFARCTION [None]
  - RENAL FAILURE [None]
  - RESPIRATORY FAILURE [None]
